FAERS Safety Report 23824665 (Version 2)
Quarter: 2025Q1

REPORT INFORMATION
  Report Type: Spontaneous
  Country: US (occurrence: US)
  Receive Date: 20240507
  Receipt Date: 20250128
  Transmission Date: 20250408
  Serious: No
  Sender: ABBVIE
  Company Number: US-ABBVIE-5745682

PATIENT
  Sex: Male

DRUGS (1)
  1. LEXAPRO [Suspect]
     Active Substance: ESCITALOPRAM OXALATE
     Indication: Anxiety disorder
     Route: 048

REACTIONS (5)
  - Anxiety [Unknown]
  - Sexual dysfunction [Unknown]
  - Night sweats [Unknown]
  - Orgasm abnormal [Unknown]
  - Ejaculation failure [Unknown]
